FAERS Safety Report 7855762 (Version 4)
Quarter: 2013Q4

REPORT INFORMATION
  Report Type: Spontaneous
  Country: JP (occurrence: JP)
  Receive Date: 20110216
  Receipt Date: 20131031
  Transmission Date: 20140711
  Serious: Yes (Other)
  Sender: FDA-Public Use
  Company Number: JP-009507513-2011SP006506

PATIENT
  Age: 8 Decade
  Sex: Male

DRUGS (3)
  1. REMERON [Suspect]
     Indication: DEPRESSION
     Dosage: UNK
     Route: 048
  2. REMERON [Suspect]
     Dosage: DAILY DOSAGE UNKNOWN
     Route: 048
  3. WARFARIN POTASSIUM [Suspect]
     Indication: CARDIAC DISORDER
     Dosage: DAILY DOSAGE UNKNOWN
     Route: 048

REACTIONS (4)
  - Prothrombin time prolonged [Recovered/Resolved]
  - International normalised ratio increased [Recovered/Resolved]
  - Epistaxis [Recovered/Resolved]
  - Drug interaction [Recovered/Resolved]
